FAERS Safety Report 7792565-7 (Version None)
Quarter: 2011Q4

REPORT INFORMATION
  Report Type: 
  Country: None (occurrence: None)
  Receive Date: 20111003
  Receipt Date: 20110927
  Transmission Date: 20120403
  Serious: Yes (Death)
  Sender: FDA-Public Use
  Company Number: US-ASTRAZENECA-2011SE52588

PATIENT
  Age: 84 Year
  Sex: Female
  Weight: 90.6 kg

DRUGS (11)
  1. PRINIVIL [Concomitant]
     Route: 048
  2. COLACE [Concomitant]
     Indication: CONSTIPATION
     Dosage: TAKE 100 MG TWICE DAILY AS NEEDED
     Route: 048
  3. CLARITIN [Concomitant]
     Route: 048
  4. LEVAQUIN [Concomitant]
     Route: 048
  5. PEPCID [Concomitant]
     Route: 048
  6. TOPROL-XL [Concomitant]
     Route: 048
  7. NITROTAB [Concomitant]
     Indication: CHEST PAIN
     Dosage: DISSOLVE 0.4 MG UNDER TONGUE EVERY FIVE MINUTES AS NEEDED
     Route: 060
  8. ASPIRIN [Concomitant]
     Route: 048
  9. CRESTOR [Concomitant]
     Route: 048
  10. BRILINTA [Suspect]
     Indication: CORONARY ARTERIAL STENT INSERTION
     Route: 048
     Dates: start: 20110826, end: 20110901
  11. EUCERIN [Concomitant]
     Dosage: APPLY TO SKIN TWICE FAILY TO BACK

REACTIONS (1)
  - THROMBOSIS IN DEVICE [None]
